FAERS Safety Report 22964071 (Version 18)
Quarter: 2024Q3

REPORT INFORMATION
  Report Type: Report from Study
  Country: US (occurrence: US)
  Receive Date: 20230921
  Receipt Date: 20240705
  Transmission Date: 20241016
  Serious: Yes (Other)
  Sender: ACADIA PHARMACEUTICALS
  Company Number: US-ACADIA PHARMACEUTICALS INC.-ACA-2023-TRF-003666

PATIENT
  Age: 24 Year
  Sex: Female
  Weight: 42 kg

DRUGS (16)
  1. DAYBUE [Suspect]
     Active Substance: TROFINETIDE
     Indication: Rett syndrome
     Dosage: 10 MILLILITER
     Route: 048
  2. DAYBUE [Suspect]
     Active Substance: TROFINETIDE
     Dosage: 30 MILLILITER, BID
     Route: 048
  3. DAYBUE [Suspect]
     Active Substance: TROFINETIDE
     Dosage: 40 MILLILITER, BID
     Route: 048
     Dates: start: 20230830
  4. DAYBUE [Suspect]
     Active Substance: TROFINETIDE
     Dosage: 50 MILLILITER, BID
     Route: 048
     Dates: start: 202309
  5. DAYBUE [Suspect]
     Active Substance: TROFINETIDE
     Dosage: 30 MILLILITER, BID
     Route: 048
  6. DAYBUE [Suspect]
     Active Substance: TROFINETIDE
     Dosage: 35 MILLILITER, BID
     Route: 048
  7. DAYBUE [Suspect]
     Active Substance: TROFINETIDE
     Dosage: 40 MILLILITER, BID
     Route: 048
  8. DAYBUE [Suspect]
     Active Substance: TROFINETIDE
     Dosage: 25 MILLILITER, BID
     Route: 048
     Dates: start: 20231122
  9. DAYBUE [Suspect]
     Active Substance: TROFINETIDE
     Dosage: 30 MILLILITER, BID
     Route: 048
  10. DAYBUE [Suspect]
     Active Substance: TROFINETIDE
     Dosage: 45ML IN AM AND 35 ML IN AFTERNOON
     Route: 048
  11. DAYBUE [Suspect]
     Active Substance: TROFINETIDE
     Dosage: 40ML IN AM AND 35 ML IN AFTERNOON
     Route: 048
     Dates: start: 20240126
  12. DAYBUE [Suspect]
     Active Substance: TROFINETIDE
     Dosage: 40 ML IN AM AND 25 ML IN PM
     Route: 048
  13. DAYBUE [Suspect]
     Active Substance: TROFINETIDE
     Dosage: 50 MILLILITER, BID
     Route: 048
  14. DAYBUE [Suspect]
     Active Substance: TROFINETIDE
     Dosage: 50 MILLILITER, QD IN THE MORNING
     Route: 048
  15. DAYBUE [Suspect]
     Active Substance: TROFINETIDE
     Dosage: 50 MILLILITER, BID
     Route: 048
  16. DAYBUE [Suspect]
     Active Substance: TROFINETIDE
     Dosage: 50 ML IN THE MORNING AND 10 ML IN THE EVENING
     Route: 048

REACTIONS (51)
  - Seizure cluster [Not Recovered/Not Resolved]
  - Seizure [Unknown]
  - Skin disorder [Not Recovered/Not Resolved]
  - Refusal of treatment by patient [Not Recovered/Not Resolved]
  - Abdominal distension [Not Recovered/Not Resolved]
  - Product use complaint [Not Recovered/Not Resolved]
  - Product use complaint [Not Recovered/Not Resolved]
  - Wound [Not Recovered/Not Resolved]
  - Constipation [Not Recovered/Not Resolved]
  - Flatulence [Not Recovered/Not Resolved]
  - Somnolence [Not Recovered/Not Resolved]
  - Intentional dose omission [Not Recovered/Not Resolved]
  - Abdominal distension [Not Recovered/Not Resolved]
  - Flatulence [Not Recovered/Not Resolved]
  - Abdominal discomfort [Unknown]
  - Somnolence [Unknown]
  - Product storage error [Not Recovered/Not Resolved]
  - Abdominal pain upper [Not Recovered/Not Resolved]
  - Underdose [Not Recovered/Not Resolved]
  - Weight decreased [Not Recovered/Not Resolved]
  - Adverse event [Not Recovered/Not Resolved]
  - Flat affect [Recovering/Resolving]
  - Intermenstrual bleeding [Not Recovered/Not Resolved]
  - Flatulence [Not Recovered/Not Resolved]
  - Flatulence [Not Recovered/Not Resolved]
  - Product dose omission issue [Recovered/Resolved]
  - Abdominal distension [Not Recovered/Not Resolved]
  - Skin disorder [Not Recovered/Not Resolved]
  - Heavy menstrual bleeding [Unknown]
  - Cough [Not Recovered/Not Resolved]
  - Sleep disorder [Not Recovered/Not Resolved]
  - Hypophagia [Unknown]
  - Breath holding [Not Recovered/Not Resolved]
  - Faeces soft [Not Recovered/Not Resolved]
  - Hypophagia [Not Recovered/Not Resolved]
  - Faeces soft [Not Recovered/Not Resolved]
  - Refusal of treatment by patient [Unknown]
  - Inappropriate schedule of product administration [Not Recovered/Not Resolved]
  - Diarrhoea [Recovered/Resolved]
  - Diarrhoea [Not Recovered/Not Resolved]
  - Diarrhoea [Not Recovered/Not Resolved]
  - Diarrhoea [Not Recovered/Not Resolved]
  - Decreased appetite [Not Recovered/Not Resolved]
  - Decreased appetite [Not Recovered/Not Resolved]
  - Diarrhoea [Not Recovered/Not Resolved]
  - Diarrhoea [Not Recovered/Not Resolved]
  - Vomiting [Unknown]
  - Diarrhoea [Not Recovered/Not Resolved]
  - Decreased appetite [Not Recovered/Not Resolved]
  - Diarrhoea [Not Recovered/Not Resolved]
  - Diarrhoea [Not Recovered/Not Resolved]

NARRATIVE: CASE EVENT DATE: 20230911
